FAERS Safety Report 11300530 (Version 1)
Quarter: 2015Q3

REPORT INFORMATION
  Report Type: Spontaneous
  Country: US (occurrence: US)
  Receive Date: 20150722
  Receipt Date: 20150722
  Transmission Date: 20151125
  Serious: Yes (Death, Other)
  Sender: FDA-Public Use
  Company Number: US-ELI_LILLY_AND_COMPANY-US201310010280

PATIENT
  Age: 64 Year
  Sex: Female
  Weight: 113 kg

DRUGS (12)
  1. CIPRO [Concomitant]
     Active Substance: CIPROFLOXACIN HYDROCHLORIDE
     Dosage: 500 MG, BID
  2. EFFIENT [Suspect]
     Active Substance: PRASUGREL HYDROCHLORIDE
     Dosage: 10 MG, QD
     Route: 048
     Dates: start: 20131026, end: 20131028
  3. EFFIENT [Suspect]
     Active Substance: PRASUGREL HYDROCHLORIDE
     Indication: PERCUTANEOUS CORONARY INTERVENTION
     Dosage: 60 MG, SINGLE
     Dates: start: 20131025, end: 20131025
  4. TRILEPTAL [Concomitant]
     Active Substance: OXCARBAZEPINE
     Dosage: 600 MG, BID
  5. ASPIRIN. [Suspect]
     Active Substance: ASPIRIN
     Dosage: 81 MG, QD
     Route: 048
  6. LIPITOR [Concomitant]
     Active Substance: ATORVASTATIN CALCIUM
     Dosage: 80 MG, QD
     Route: 048
  7. BACLOFEN. [Concomitant]
     Active Substance: BACLOFEN
     Dosage: 10 MG, TID
  8. LYRICA [Concomitant]
     Active Substance: PREGABALIN
     Dosage: 100 MG, TID
  9. PHENYLEPHRINE [Concomitant]
     Active Substance: PHENYLEPHRINE\PHENYLEPHRINE HYDROCHLORIDE
     Route: 042
  10. ASPIRIN. [Suspect]
     Active Substance: ASPIRIN
     Indication: PERCUTANEOUS CORONARY INTERVENTION
     Dosage: 325 MG, UNK
     Route: 048
     Dates: start: 20131025
  11. NITROGLYCERIN. [Concomitant]
     Active Substance: NITROGLYCERIN
     Route: 042
  12. METOPROLOL [Concomitant]
     Active Substance: METOPROLOL
     Dosage: 25 MG, QD

REACTIONS (2)
  - Haemorrhagic stroke [Fatal]
  - Labile blood pressure [Unknown]

NARRATIVE: CASE EVENT DATE: 20131025
